FAERS Safety Report 10023362 (Version 2)
Quarter: 2014Q1

REPORT INFORMATION
  Report Type: Spontaneous
  Country: JP (occurrence: JP)
  Receive Date: 20140320
  Receipt Date: 20140320
  Transmission Date: 20141002
  Serious: Yes (Hospitalization)
  Sender: FDA-Public Use
  Company Number: JP-AMGEN-JPNSP2014011918

PATIENT
  Age: 76 Year
  Sex: Female
  Weight: 45 kg

DRUGS (16)
  1. VECTIBIX [Suspect]
     Indication: COLON CANCER
     Dosage: UNK UNK, UNK
     Route: 041
  2. VECTIBIX [Suspect]
     Dosage: 300 MG, Q2WK
     Route: 041
     Dates: start: 20140210, end: 20140210
  3. VECTIBIX [Suspect]
     Dosage: 300 MG, Q2WK
     Route: 041
     Dates: start: 20140310, end: 20140310
  4. CAMPTO [Suspect]
     Indication: COLON CANCER
     Dosage: UNK UNK, Q2WK
     Route: 041
  5. CAMPTO [Suspect]
     Dosage: 200 MG, Q2WK
     Route: 041
     Dates: start: 20140210
  6. 5-FU /00098801/ [Suspect]
     Indication: COLON CANCER
     Dosage: UNK UNK, Q2WK
     Route: 041
  7. 5-FU /00098801/ [Suspect]
     Dosage: 3500 MG, Q2WK
     Route: 041
     Dates: start: 20140210
  8. LEVOFOLINATE [Suspect]
     Indication: COLON CANCER
     Dosage: UNK UNK, Q2WK
     Route: 041
  9. LEVOFOLINATE [Suspect]
     Dosage: 300 UNK, Q2WK
     Route: 041
     Dates: start: 20140210
  10. OXALIPLATIN [Suspect]
     Indication: COLON CANCER
     Dosage: UNK
     Route: 041
  11. GRANISETRON [Concomitant]
     Dosage: UNK UNK, Q2WK
     Route: 041
  12. GRANISETRON [Concomitant]
     Dosage: 3 UNK, Q2WK
     Route: 041
     Dates: start: 20140210
  13. DECADRON                           /00016002/ [Concomitant]
     Dosage: UNK UNK, Q2WK
     Route: 041
  14. DECADRON                           /00016002/ [Concomitant]
     Dosage: 8 MG, Q2WK
     Route: 041
     Dates: start: 20140210
  15. POLARAMINE [Concomitant]
     Dosage: UNK UNK, Q2WK
     Route: 041
  16. POLARAMINE [Concomitant]
     Dosage: 5 MG, Q2WK
     Route: 041
     Dates: start: 20140210

REACTIONS (2)
  - Muscular weakness [Recovering/Resolving]
  - Hypoaesthesia [Recovering/Resolving]
